FAERS Safety Report 5026465-2 (Version None)
Quarter: 2006Q2

REPORT INFORMATION
  Report Type: 
  Country: None (occurrence: None)
  Receive Date: 20060613
  Receipt Date: 20060613
  Transmission Date: 20061013
  Serious: Yes (Disabling)
  Sender: FDA-Public Use
  Company Number: None

PATIENT
  Age: 52 Year
  Sex: Female
  Weight: 43.0917 kg

DRUGS (1)
  1. BOTOX [Suspect]
     Indication: BONE DISORDER
     Dates: start: 20010101

REACTIONS (1)
  - DISABILITY [None]
